FAERS Safety Report 6368546-7 (Version None)
Quarter: 2009Q3

REPORT INFORMATION
  Report Type: 
  Country: None (occurrence: None)
  Receive Date: 20090922
  Receipt Date: 20090911
  Transmission Date: 20100115
  Serious: Yes (Hospitalization, Other)
  Sender: FDA-Public Use
  Company Number: US-JNJFOC-20090705686

PATIENT
  Sex: Male
  Weight: 72.58 kg

DRUGS (3)
  1. REMICADE [Suspect]
     Indication: PSORIASIS
     Route: 042
  2. METHOTREXATE [Concomitant]
  3. FOLIC ACID [Concomitant]

REACTIONS (1)
  - PNEUMONIA LEGIONELLA [None]
